FAERS Safety Report 9452361 (Version 1)
Quarter: 2013Q3

REPORT INFORMATION
  Report Type: Spontaneous
  Country: US (occurrence: US)
  Receive Date: 20130812
  Receipt Date: 20130812
  Transmission Date: 20140515
  Serious: No
  Sender: FDA-Public Use
  Company Number: US-009507513-1308USA004700

PATIENT
  Sex: Female

DRUGS (3)
  1. SINGULAIR [Suspect]
     Indication: WHEEZING
     Dosage: 10 MG, QD
     Route: 048
     Dates: start: 2003
  2. SYMBICORT [Concomitant]
     Dosage: UNK
  3. PROVENTIL [Concomitant]

REACTIONS (2)
  - Wheezing [Recovering/Resolving]
  - Drug dose omission [Unknown]
